FAERS Safety Report 16856854 (Version 1)
Quarter: 2019Q3

REPORT INFORMATION
  Report Type: Spontaneous
  Country: US (occurrence: US)
  Receive Date: 20190926
  Receipt Date: 20190926
  Transmission Date: 20191005
  Serious: No
  Sender: FDA-Public Use
  Company Number: US-JNJFOC-20190919098

PATIENT
  Age: 76 Year
  Sex: Male

DRUGS (6)
  1. ACETAMINOPHEN. [Concomitant]
     Active Substance: ACETAMINOPHEN
  2. DENOSUMAB [Concomitant]
     Active Substance: DENOSUMAB
  3. TAMSULOSIN [Concomitant]
     Active Substance: TAMSULOSIN
  4. LEUPROLIDE [Concomitant]
     Active Substance: LEUPROLIDE
  5. ERLEADA [Suspect]
     Active Substance: APALUTAMIDE
     Indication: PRODUCT USED FOR UNKNOWN INDICATION
     Route: 048
     Dates: start: 20190626
  6. CLONAZEPAM. [Concomitant]
     Active Substance: CLONAZEPAM

REACTIONS (3)
  - Dyspnoea [Unknown]
  - Lip swelling [Unknown]
  - Pharyngeal swelling [Unknown]
